FAERS Safety Report 10068074 (Version 2)
Quarter: 2014Q2

REPORT INFORMATION
  Report Type: Spontaneous
  Country: US (occurrence: US)
  Receive Date: 20140409
  Receipt Date: 20140526
  Transmission Date: 20141212
  Serious: No
  Sender: FDA-Public Use
  Company Number: US-JNJFOC-20140401839

PATIENT
  Age: 22 Year
  Sex: Male
  Weight: 40.82 kg

DRUGS (1)
  1. INVEGA SUSTENNA [Suspect]
     Indication: SCHIZOPHRENIA
     Route: 030
     Dates: start: 20130814

REACTIONS (2)
  - Underdose [Unknown]
  - Needle issue [Unknown]
